FAERS Safety Report 7982484-5 (Version None)
Quarter: 2011Q4

REPORT INFORMATION
  Report Type: 
  Country: None (occurrence: None)
  Receive Date: 20111215
  Receipt Date: 20111207
  Transmission Date: 20120403
  Serious: Yes (Death, Hospitalization)
  Sender: FDA-Public Use
  Company Number: CH-ROCHE-1010208

PATIENT
  Sex: Male
  Weight: 100 kg

DRUGS (5)
  1. CORTICOSTEROID (UNK INGREDIENTS) [Concomitant]
  2. PREDNISOLONE [Suspect]
     Indication: TEMPORAL ARTERITIS
     Route: 048
     Dates: start: 20110518
  3. ACTEMRA [Suspect]
     Route: 042
     Dates: start: 20110809
  4. ACTEMRA [Suspect]
     Route: 042
     Dates: start: 20110830
  5. ACTEMRA [Suspect]
     Indication: TEMPORAL ARTERITIS
     Route: 042
     Dates: start: 20110726

REACTIONS (2)
  - DIVERTICULITIS [None]
  - DIVERTICULAR PERFORATION [None]
